FAERS Safety Report 8548221-0 (Version None)
Quarter: 2012Q3

REPORT INFORMATION
  Report Type: 
  Country: None (occurrence: None)
  Receive Date: 20120730
  Receipt Date: 20120717
  Transmission Date: 20120928
  Serious: Yes (Hospitalization)
  Sender: FDA-Public Use
  Company Number: FR-009507513-1207FRA007142

PATIENT

DRUGS (6)
  1. ROCURONIUM BROMIDE [Suspect]
     Indication: INDUCTION OF ANAESTHESIA
     Dosage: 8 MG, UNK
  2. PROPOFOL [Concomitant]
     Indication: INDUCTION OF ANAESTHESIA
     Dosage: 180 MG,ONCE
  3. METHYLPREDNISOLONE [Concomitant]
     Indication: MYASTHENIA GRAVIS
  4. IMMUNE GLOBULIN (HUMAN) [Concomitant]
     Indication: MYASTHENIA GRAVIS
  5. SUFENTANIL CITRATE [Concomitant]
     Indication: INDUCTION OF ANAESTHESIA
     Dosage: 20 MICROGRAM, UNK
  6. PROPOFOL [Concomitant]
     Dosage: 2 MG/KG, UNK

REACTIONS (2)
  - INCORRECT DRUG ADMINISTRATION RATE [None]
  - MATERNAL EXPOSURE DURING PREGNANCY [None]
